FAERS Safety Report 16239575 (Version 1)
Quarter: 2019Q2

REPORT INFORMATION
  Report Type: Spontaneous
  Country: US (occurrence: US)
  Receive Date: 20190425
  Receipt Date: 20190425
  Transmission Date: 20190711
  Serious: Yes (Other)
  Sender: FDA-Public Use
  Company Number: US-BAUSCH-BL-2019-011762

PATIENT

DRUGS (3)
  1. NEXIUM [Suspect]
     Active Substance: ESOMEPRAZOLE MAGNESIUM
     Indication: PRODUCT USED FOR UNKNOWN INDICATION
     Dosage: START DATE: APPROXIMATELY 19/MAY/2007
     Route: 065
     Dates: end: 20070720
  2. PRILOSEC [Suspect]
     Active Substance: OMEPRAZOLE MAGNESIUM
     Indication: PRODUCT USED FOR UNKNOWN INDICATION
     Dosage: START DATE: APPROXIMATELY 19/MAY/2007
     Route: 065
     Dates: end: 20070720
  3. ZEGERID [Suspect]
     Active Substance: OMEPRAZOLE\SODIUM BICARBONATE
     Indication: PRODUCT USED FOR UNKNOWN INDICATION
     Dosage: START DATE: APPROXIMATELY 19/MAY/2007
     Route: 065
     Dates: end: 20070720

REACTIONS (2)
  - Chronic kidney disease [Unknown]
  - Renal failure [Unknown]
